FAERS Safety Report 11653397 (Version 2)
Quarter: 2016Q1

REPORT INFORMATION
  Report Type: Spontaneous
  Country: US (occurrence: US)
  Receive Date: 20151022
  Receipt Date: 20160119
  Transmission Date: 20160525
  Serious: No
  Sender: FDA-Public Use
  Company Number: US-ELI_LILLY_AND_COMPANY-US201510003259

PATIENT
  Sex: Female
  Weight: 54.6 kg

DRUGS (3)
  1. HUMALOG [Suspect]
     Active Substance: INSULIN LISPRO
     Dosage: 25 U, QD
     Route: 058
  2. FLU [Concomitant]
     Active Substance: INFLUENZA VIRUS VACCINE
  3. HUMALOG [Suspect]
     Active Substance: INSULIN LISPRO
     Indication: TYPE 1 DIABETES MELLITUS
     Dosage: UNK
     Route: 058
     Dates: start: 2000

REACTIONS (9)
  - Feeling abnormal [Unknown]
  - Mental impairment [Recovered/Resolved]
  - Blood glucose increased [Recovered/Resolved]
  - Blood ketone body [Recovered/Resolved]
  - Malaise [Unknown]
  - Insulin resistance [Recovered/Resolved]
  - Drug ineffective [Recovered/Resolved]
  - Blood glucose increased [Recovered/Resolved]
  - Abdominal pain upper [Unknown]

NARRATIVE: CASE EVENT DATE: 2007
